FAERS Safety Report 14185440 (Version 1)
Quarter: 2017Q4

REPORT INFORMATION
  Report Type: Spontaneous
  Country: US (occurrence: US)
  Receive Date: 20171114
  Receipt Date: 20171114
  Transmission Date: 20180321
  Serious: Yes (Death, Other)
  Sender: FDA-Public Use
  Company Number: US-ASTELLAS-2017US046495

PATIENT
  Age: 71 Year
  Sex: Male

DRUGS (8)
  1. TOBRAMYCIN. [Concomitant]
     Active Substance: TOBRAMYCIN
     Indication: PROPHYLAXIS
     Dosage: UNK UNK, UNKNOWN FREQ. (INHALED)
     Route: 065
  2. AMPHOTERICIN B LIPID COMPLEX [Concomitant]
     Active Substance: AMPHOTERICIN B
     Indication: PROPHYLAXIS
     Dosage: UNK UNK, UNKNOWN FREQ. (INHALED)
     Route: 065
  3. CEFEPIME [Concomitant]
     Active Substance: CEFEPIME HYDROCHLORIDE
     Indication: PROPHYLAXIS
     Dosage: UNK UNK, UNKNOWN FREQ.
     Route: 065
  4. TACROLIMUS. [Suspect]
     Active Substance: TACROLIMUS
     Indication: LUNG TRANSPLANT
     Dosage: UNK UNK, UNKNOWN FREQ.
     Route: 065
  5. MICAFUNGIN [Suspect]
     Active Substance: MICAFUNGIN
     Indication: PROPHYLAXIS
     Dosage: UNK UNK, UNKNOWN FREQ.
     Route: 065
  6. MYCOPHENOLATE MOFETIL. [Concomitant]
     Active Substance: MYCOPHENOLATE MOFETIL
     Indication: LUNG TRANSPLANT
     Dosage: UNK UNK, UNKNOWN FREQ.
     Route: 065
  7. METHYLPREDNISOLONE. [Concomitant]
     Active Substance: METHYLPREDNISOLONE
     Indication: LUNG TRANSPLANT
     Dosage: UNK UNK, UNKNOWN FREQ.
     Route: 065
  8. VANCOMYCIN [Concomitant]
     Active Substance: VANCOMYCIN
     Indication: PROPHYLAXIS
     Dosage: UNK UNK, UNKNOWN FREQ.
     Route: 065

REACTIONS (8)
  - Off label use [Unknown]
  - Cardio-respiratory arrest [Fatal]
  - Ventricular tachycardia [Unknown]
  - Hypotension [Unknown]
  - Respiratory arrest [Unknown]
  - Pneumothorax [Unknown]
  - Candida infection [Unknown]
  - Haemodynamic instability [Unknown]
